FAERS Safety Report 16755249 (Version 2)
Quarter: 2019Q3

REPORT INFORMATION
  Report Type: Spontaneous
  Country: US (occurrence: US)
  Receive Date: 20190829
  Receipt Date: 20190830
  Transmission Date: 20191005
  Serious: Yes (Death)
  Sender: FDA-Public Use
  Company Number: US-ROCHE-2389083

PATIENT
  Age: 73 Year
  Sex: Male

DRUGS (2)
  1. ERIVEDGE [Suspect]
     Active Substance: VISMODEGIB
     Dosage: 150 MG DAILY FOR 07 DAYS ON AND 07 DAYS OFF.
     Route: 048
     Dates: start: 201807
  2. ERIVEDGE [Suspect]
     Active Substance: VISMODEGIB
     Indication: RENAL CANCER
     Route: 048
     Dates: start: 20161016

REACTIONS (3)
  - Off label use [Unknown]
  - Neoplasm malignant [Fatal]
  - Intentional product use issue [Unknown]

NARRATIVE: CASE EVENT DATE: 20190809
